FAERS Safety Report 12537040 (Version 1)
Quarter: 2016Q3

REPORT INFORMATION
  Report Type: Spontaneous
  Country: US (occurrence: US)
  Receive Date: 20160707
  Receipt Date: 20160707
  Transmission Date: 20161109
  Serious: No
  Sender: FDA-Public Use
  Company Number: US-PFIZER INC-2016320090

PATIENT
  Age: 68 Year
  Sex: Male
  Weight: 82 kg

DRUGS (5)
  1. LYRICA [Suspect]
     Active Substance: PREGABALIN
     Indication: SEIZURE
     Dosage: 75 MG, 2X/DAY, IN THE MORNING AND IN THE EVENING
     Route: 048
  2. TEGRETOL [Concomitant]
     Active Substance: CARBAMAZEPINE
     Indication: EPILEPSY
     Dosage: 200 MG, 3X/DAY
     Route: 048
  3. LAMICTAL [Concomitant]
     Active Substance: LAMOTRIGINE
     Indication: EPILEPSY
     Dosage: 500 MG, DAILY, 100 MG IN THE MORNING, 200 MG IN THE AFTERNOON, AND 200 MG IN THE EVENING
  4. AVODART [Concomitant]
     Active Substance: DUTASTERIDE
     Indication: INCONTINENCE
     Dosage: 0.5 MG, 1X/DAY, IN THE EVENING
     Dates: start: 2014
  5. KEPPRA [Concomitant]
     Active Substance: LEVETIRACETAM
     Indication: EPILEPSY
     Dosage: 250 MG, 1X/DAY, IN THE EVENING

REACTIONS (1)
  - Amnesia [Recovering/Resolving]
